FAERS Safety Report 15125032 (Version 1)
Quarter: 2018Q3

REPORT INFORMATION
  Report Type: Spontaneous
  Country: AU (occurrence: AU)
  Receive Date: 20180710
  Receipt Date: 20180710
  Transmission Date: 20181010
  Serious: Yes (Other)
  Sender: FDA-Public Use
  Company Number: AU-TEVA-2018-AU-922417

PATIENT
  Sex: Female

DRUGS (8)
  1. ZONEGRAN [Concomitant]
     Active Substance: ZONISAMIDE
     Dosage: 50MG TWICE A DAY
  2. SIFROL [Concomitant]
     Active Substance: PRAMIPEXOLE
     Dosage: 0.25MG DAILY
  3. PROGYNOVA [Concomitant]
     Active Substance: ESTRADIOL VALERATE
  4. MAGNESIUM [Concomitant]
     Active Substance: MAGNESIUM
  5. ATACAND [Concomitant]
     Active Substance: CANDESARTAN CILEXETIL
     Dosage: 8MG DAILY
  6. ENDEP [Concomitant]
     Active Substance: AMITRIPTYLINE HYDROCHLORIDE
     Dosage: 75MG
  7. LAMOTRIGINE. [Concomitant]
     Active Substance: LAMOTRIGINE
     Dosage: 200MG NOCTE
  8. QUETIAPINE. [Suspect]
     Active Substance: QUETIAPINE
     Dosage: 25 MILLIGRAM DAILY; QUETIAPINE 25MG AT NIGHT

REACTIONS (3)
  - Endometrial cancer [Unknown]
  - Bipolar disorder [Unknown]
  - Restless legs syndrome [Unknown]
